FAERS Safety Report 9653164 (Version 2)
Quarter: 2013Q4

REPORT INFORMATION
  Report Type: Spontaneous
  Country: US (occurrence: None)
  Receive Date: 20131028
  Receipt Date: 20131113
  Transmission Date: 20140711
  Serious: Yes (Other)
  Sender: FDA-Public Use
  Company Number: 2013SA106474

PATIENT
  Sex: 0

DRUGS (2)
  1. ICY HOT NO MESS [Suspect]
     Indication: NECK PAIN
     Dosage: ; UNKNOWN ; UNKNOWN
     Dates: start: 20131011
  2. ICY HOT NO MESS [Suspect]
     Indication: MUSCULOSKELETAL PAIN
     Dosage: ; UNKNOWN ; UNKNOWN
     Dates: start: 20131011

REACTIONS (5)
  - Burning sensation [None]
  - Blister [None]
  - Skin exfoliation [None]
  - Dermatitis [None]
  - Chemical injury [None]
